FAERS Safety Report 5903644-0 (Version None)
Quarter: 2008Q3

REPORT INFORMATION
  Report Type: 
  Country: None (occurrence: None)
  Receive Date: 20080930
  Receipt Date: 20080917
  Transmission Date: 20090109
  Serious: Yes (Hospitalization)
  Sender: FDA-Public Use
  Company Number: US-ELI_LILLY_AND_COMPANY-US200809003882

PATIENT
  Sex: Female

DRUGS (15)
  1. BYETTA [Suspect]
     Indication: TYPE 2 DIABETES MELLITUS
     Dosage: 5 UG, 2/D
     Route: 058
     Dates: start: 20070301, end: 20080801
  2. BYETTA [Suspect]
     Dosage: 5 UG, 2/D
     Route: 058
     Dates: start: 20080826
  3. GLIPIZIDE [Concomitant]
     Indication: TYPE 2 DIABETES MELLITUS
     Dosage: UNK, UNKNOWN
  4. ADALAT [Concomitant]
     Indication: HYPERTENSION
     Dosage: UNK, UNKNOWN
  5. LISINOPRIL [Concomitant]
     Indication: HYPERTENSION
     Dosage: 40 MG, UNKNOWN
  6. PLETAL [Concomitant]
     Indication: RAYNAUD'S PHENOMENON
     Dosage: 100 MG, UNKNOWN
  7. NEURONTIN [Concomitant]
     Indication: NEUROPATHY PERIPHERAL
     Dosage: UNK, UNKNOWN
  8. OMEPRAZOLE [Concomitant]
     Indication: GASTROOESOPHAGEAL REFLUX DISEASE
     Dosage: 30 MG, UNKNOWN
  9. VICODIN [Concomitant]
     Indication: BACK DISORDER
  10. PREDNISONE [Concomitant]
     Indication: RHEUMATOID ARTHRITIS
     Dosage: UNK, UNKNOWN
  11. LEFLUNOMIDE [Concomitant]
     Indication: RHEUMATOID ARTHRITIS
     Dosage: UNK, UNKNOWN
  12. ASPIRIN [Concomitant]
     Dosage: 81 UG, UNKNOWN
  13. CALCIUM WITH VITAMIN D [Concomitant]
     Dosage: UNK, UNKNOWN
  14. IRON [Concomitant]
     Dosage: UNK, UNKNOWN
  15. VITAMIN B-12 [Concomitant]
     Dosage: UNK, UNKNOWN

REACTIONS (5)
  - DEHYDRATION [None]
  - DIARRHOEA [None]
  - GASTRITIS [None]
  - HYPOPHAGIA [None]
  - VOMITING [None]
